FAERS Safety Report 5881311-X (Version None)
Quarter: 2008Q3

REPORT INFORMATION
  Report Type: 
  Country: None (occurrence: None)
  Receive Date: 20080912
  Receipt Date: 20080626
  Transmission Date: 20090109
  Serious: No
  Sender: FDA-Public Use
  Company Number: US-ABBOTT-08P-163-0459634-00

PATIENT
  Sex: Female

DRUGS (4)
  1. HUMIRA [Suspect]
     Indication: JUVENILE ARTHRITIS
     Route: 058
     Dates: start: 20071001
  2. STEROIDS [Concomitant]
     Indication: DRUG USE FOR UNKNOWN INDICATION
  3. VIGRAN [Concomitant]
     Indication: DRUG USE FOR UNKNOWN INDICATION
  4. ACETAMINOPHEN [Concomitant]
     Indication: DRUG USE FOR UNKNOWN INDICATION

REACTIONS (4)
  - GASTROENTERITIS VIRAL [None]
  - INJECTION SITE DISCOMFORT [None]
  - NASOPHARYNGITIS [None]
  - VIRAL INFECTION [None]
